FAERS Safety Report 9381864 (Version 1)
Quarter: 2013Q3

REPORT INFORMATION
  Report Type: Spontaneous
  Country: US (occurrence: US)
  Receive Date: 20130703
  Receipt Date: 20130703
  Transmission Date: 20140515
  Serious: No
  Sender: FDA-Public Use
  Company Number: US-BAYER-2013-073273

PATIENT
  Age: 83 Year
  Sex: Female

DRUGS (1)
  1. CIPRO [Suspect]
     Indication: LUNG INFECTION PSEUDOMONAL
     Route: 048

REACTIONS (3)
  - Pain of skin [None]
  - Eye pain [None]
  - Fear [None]
